FAERS Safety Report 4474057-6 (Version None)
Quarter: 2004Q4

REPORT INFORMATION
  Report Type: 
  Country: None (occurrence: None)
  Receive Date: 20041008
  Receipt Date: 20040916
  Transmission Date: 20050328
  Serious: Yes (Other)
  Sender: FDA-Public Use
  Company Number: USA040978401

PATIENT
  Age: 80 Year
  Sex: Female

DRUGS (4)
  1. XIGRIS [Suspect]
     Indication: SEPSIS
     Dosage: 24 UG/KG/HR
     Dates: start: 20040908, end: 20040912
  2. CEFTRIAXONE SODIUM [Concomitant]
  3. VANCOMYCIN [Concomitant]
  4. MORPHINE [Concomitant]

REACTIONS (3)
  - BLOOD PRESSURE DECREASED [None]
  - CREATININE RENAL CLEARANCE DECREASED [None]
  - GENERAL PHYSICAL HEALTH DETERIORATION [None]
